FAERS Safety Report 8103026-X (Version None)
Quarter: 2012Q1

REPORT INFORMATION
  Report Type: 
  Country: None (occurrence: None)
  Receive Date: 20120201
  Receipt Date: 20120201
  Transmission Date: 20120608
  Serious: No
  Sender: FDA-Public Use
  Company Number: None

PATIENT
  Sex: Female
  Weight: 85.275 kg

DRUGS (2)
  1. DILTIAZEM HCL [Suspect]
     Indication: HYPERTENSION
     Route: 048
     Dates: start: 20101020, end: 20110310
  2. DILTIAZEM HCL [Suspect]
     Indication: ANGINA PECTORIS
     Route: 048
     Dates: start: 20101020, end: 20110310

REACTIONS (2)
  - RASH [None]
  - HEART RATE INCREASED [None]
